FAERS Safety Report 11803744 (Version 5)
Quarter: 2016Q4

REPORT INFORMATION
  Report Type: Report from Study
  Country: JP (occurrence: JP)
  Receive Date: 20151204
  Receipt Date: 20161221
  Transmission Date: 20170206
  Serious: Yes (Death, Life-Threatening, Hospitalization, Other)
  Sender: FDA-Public Use
  Company Number: JP-INCYTE CORPORATION-2015IN006308

PATIENT
  Age: 72 Year
  Sex: Female

DRUGS (37)
  1. JAKAVI [Suspect]
     Active Substance: RUXOLITINIB
     Indication: MYELOFIBROSIS
     Dosage: 5 MG, BID
     Route: 048
     Dates: start: 20150409, end: 20150429
  2. JAKAVI [Suspect]
     Active Substance: RUXOLITINIB
     Dosage: 7.5 MG, BID
     Route: 048
     Dates: start: 20150430, end: 20150521
  3. JAKAVI [Suspect]
     Active Substance: RUXOLITINIB
     Dosage: 15 MG, BID
     Route: 048
     Dates: start: 20150804, end: 20151007
  4. RED CELLS MAP [Concomitant]
     Active Substance: HUMAN RED BLOOD CELL
     Dosage: 2 IU, UNK
     Route: 065
     Dates: start: 20150713, end: 20150713
  5. RED CELLS MAP [Concomitant]
     Active Substance: HUMAN RED BLOOD CELL
     Dosage: 2 IU, UNK
     Route: 065
     Dates: start: 20150810, end: 20150810
  6. PLATELET CONCENTRATE(IRRADIATED) [Concomitant]
     Dosage: 10 IU, UNK
     Route: 065
     Dates: start: 20151011, end: 20151011
  7. RED CELLS MAP [Concomitant]
     Active Substance: HUMAN RED BLOOD CELL
     Dosage: 2 IU, UNK
     Route: 065
     Dates: start: 20150830, end: 20150830
  8. RED CELLS MAP [Concomitant]
     Active Substance: HUMAN RED BLOOD CELL
     Dosage: 2 IU, UNK
     Route: 065
     Dates: start: 20150831, end: 20150831
  9. RED CELLS MAP [Concomitant]
     Active Substance: HUMAN RED BLOOD CELL
     Dosage: 2 IU, UNK
     Route: 065
     Dates: start: 20151019, end: 20151019
  10. RED CELLS MAP [Concomitant]
     Active Substance: HUMAN RED BLOOD CELL
     Dosage: 2 IU, UNK
     Route: 065
     Dates: start: 20151026, end: 20151026
  11. PLATELET CONCENTRATE(IRRADIATED) [Concomitant]
     Indication: MYELOFIBROSIS
     Dosage: 10 IU, UNK
     Route: 065
     Dates: start: 20151006, end: 20151026
  12. PLATELET CONCENTRATE(IRRADIATED) [Concomitant]
     Dosage: 10 IU, UNK
     Route: 065
     Dates: start: 20151006, end: 20151006
  13. RED CELLS MAP [Concomitant]
     Active Substance: HUMAN RED BLOOD CELL
     Dosage: 2 IU, UNK
     Route: 065
     Dates: start: 20150601, end: 20150601
  14. JAKAVI [Suspect]
     Active Substance: RUXOLITINIB
     Dosage: 12.5 MG, BID
     Route: 048
     Dates: start: 20150601, end: 20150803
  15. RED CELLS MAP [Concomitant]
     Active Substance: HUMAN RED BLOOD CELL
     Dosage: 2 IU, UNK
     Route: 065
     Dates: start: 20150730, end: 20150730
  16. RED CELLS MAP [Concomitant]
     Active Substance: HUMAN RED BLOOD CELL
     Dosage: 2 IU, UNK
     Route: 065
     Dates: start: 20150907, end: 20150907
  17. RED CELLS MAP [Concomitant]
     Active Substance: HUMAN RED BLOOD CELL
     Dosage: 2 IU, UNK
     Route: 065
     Dates: start: 20151013, end: 20151013
  18. PLATELET CONCENTRATE(IRRADIATED) [Concomitant]
     Dosage: 10 IU, UNK
     Route: 065
     Dates: start: 20151026, end: 20151026
  19. JAKAVI [Suspect]
     Active Substance: RUXOLITINIB
     Dosage: 10 MG, BID
     Route: 048
     Dates: start: 20150521, end: 20150531
  20. JAKAVI [Suspect]
     Active Substance: RUXOLITINIB
     Dosage: 17.5 MG, BID
     Route: 048
     Dates: start: 20151008, end: 20151021
  21. RED CELLS MAP [Concomitant]
     Active Substance: HUMAN RED BLOOD CELL
     Indication: MYELOFIBROSIS
     Dosage: 2 IU, UNK
     Route: 065
     Dates: start: 20150521, end: 20151026
  22. RED CELLS MAP [Concomitant]
     Active Substance: HUMAN RED BLOOD CELL
     Dosage: 2 IU, UNK
     Route: 065
     Dates: start: 20150706, end: 20150706
  23. RED CELLS MAP [Concomitant]
     Active Substance: HUMAN RED BLOOD CELL
     Dosage: 2 IU, UNK
     Route: 065
     Dates: start: 20150804, end: 20150804
  24. RED CELLS MAP [Concomitant]
     Active Substance: HUMAN RED BLOOD CELL
     Dosage: 2 IU, UNK
     Route: 065
     Dates: start: 20150914, end: 20150914
  25. RED CELLS MAP [Concomitant]
     Active Substance: HUMAN RED BLOOD CELL
     Dosage: 2 IU, UNK
     Route: 065
     Dates: start: 20150928, end: 20150928
  26. RED CELLS MAP [Concomitant]
     Active Substance: HUMAN RED BLOOD CELL
     Dosage: 2 IU, UNK
     Route: 065
     Dates: start: 20151023, end: 20151023
  27. RED CELLS MAP [Concomitant]
     Active Substance: HUMAN RED BLOOD CELL
     Dosage: 2 IU, UNK
     Route: 065
     Dates: start: 20150622, end: 20150622
  28. RED CELLS MAP [Concomitant]
     Active Substance: HUMAN RED BLOOD CELL
     Dosage: 2 IU, UNK
     Route: 065
     Dates: start: 20150629, end: 20150629
  29. RED CELLS MAP [Concomitant]
     Active Substance: HUMAN RED BLOOD CELL
     Dosage: 2 IU, UNK
     Route: 065
     Dates: start: 20150721, end: 20150721
  30. RED CELLS MAP [Concomitant]
     Active Substance: HUMAN RED BLOOD CELL
     Dosage: 2 IU, UNK
     Route: 065
     Dates: start: 20150723, end: 20150723
  31. RED CELLS MAP [Concomitant]
     Active Substance: HUMAN RED BLOOD CELL
     Dosage: 2 IU, UNK
     Route: 065
     Dates: start: 20150817, end: 20150817
  32. RED CELLS MAP [Concomitant]
     Active Substance: HUMAN RED BLOOD CELL
     Dosage: 2 IU, UNK
     Route: 065
     Dates: start: 20151005, end: 20151005
  33. RED CELLS MAP [Concomitant]
     Active Substance: HUMAN RED BLOOD CELL
     Dosage: 2 IU, UNK
     Route: 065
     Dates: start: 20151008, end: 20151008
  34. RED CELLS MAP [Concomitant]
     Active Substance: HUMAN RED BLOOD CELL
     Dosage: 2 IU, UNK
     Route: 065
     Dates: start: 20151017, end: 20151017
  35. RED CELLS MAP [Concomitant]
     Active Substance: HUMAN RED BLOOD CELL
     Dosage: 2 IU, UNK
     Route: 065
     Dates: start: 20150615, end: 20150615
  36. RED CELLS MAP [Concomitant]
     Active Substance: HUMAN RED BLOOD CELL
     Dosage: 2 IU, UNK
     Route: 065
     Dates: start: 20150924, end: 20150924
  37. RED CELLS MAP [Concomitant]
     Active Substance: HUMAN RED BLOOD CELL
     Dosage: 2 IU, UNK
     Route: 065
     Dates: start: 20151001, end: 20151001

REACTIONS (6)
  - Blood alkaline phosphatase increased [Not Recovered/Not Resolved]
  - Cardiac failure chronic [Fatal]
  - Myelofibrosis [Unknown]
  - Gamma-glutamyltransferase increased [Not Recovered/Not Resolved]
  - Overdose [Unknown]
  - Anaemia [Not Recovered/Not Resolved]

NARRATIVE: CASE EVENT DATE: 20150421
